FAERS Safety Report 9516215 (Version 1)
Quarter: 2013Q3

REPORT INFORMATION
  Report Type: Spontaneous
  Country: CN (occurrence: CN)
  Receive Date: 20130911
  Receipt Date: 20130911
  Transmission Date: 20140515
  Serious: Yes (Other)
  Sender: FDA-Public Use
  Company Number: CN-SANOFI-AVENTIS-2013SA089090

PATIENT
  Age: 48 Year
  Sex: Male
  Weight: 65 kg

DRUGS (2)
  1. PLAVIX [Suspect]
     Indication: VERTEBRAL ARTERY STENOSIS
     Route: 048
     Dates: start: 20130813
  2. ASPIRIN [Concomitant]
     Indication: VERTEBRAL ARTERY STENOSIS
     Route: 048
     Dates: start: 20130813

REACTIONS (4)
  - Altered state of consciousness [Not Recovered/Not Resolved]
  - Speech disorder [Not Recovered/Not Resolved]
  - Memory impairment [Not Recovered/Not Resolved]
  - Headache [Recovered/Resolved]
